FAERS Safety Report 14372395 (Version 3)
Quarter: 2018Q3

REPORT INFORMATION
  Report Type: Not Available
  Country: CA (occurrence: CA)
  Receive Date: 20180110
  Receipt Date: 20180830
  Transmission Date: 20181010
  Serious: Yes (Hospitalization, Other)
  Sender: FDA-Public Use
  Company Number: CA-CELGENEUS-CAN-20180101041

PATIENT
  Age: 54 Year
  Sex: Male

DRUGS (9)
  1. PREDNISONE. [Concomitant]
     Active Substance: PREDNISONE
     Indication: PRODUCT USED FOR UNKNOWN INDICATION
     Dosage: 25 MILLIGRAM
     Route: 065
  2. SULFAMETHOXAZOLE AND TRIMETHOPRIM [Concomitant]
     Active Substance: SULFAMETHOXAZOLE\TRIMETHOPRIM
     Indication: PRODUCT USED FOR UNKNOWN INDICATION
     Route: 065
  3. IXAZOMIB [Suspect]
     Active Substance: IXAZOMIB
     Indication: PLASMA CELL MYELOMA
     Dosage: 4 MILLIGRAM
     Route: 048
     Dates: start: 20161201
  4. DEXAMETHASONE. [Suspect]
     Active Substance: DEXAMETHASONE
     Indication: PLASMA CELL MYELOMA
     Route: 065
  5. MORPHINE [Concomitant]
     Active Substance: MORPHINE
     Indication: BACK PAIN
  6. MORPHINE [Concomitant]
     Active Substance: MORPHINE
     Indication: FRACTURE PAIN
     Route: 065
  7. PREDNISONE. [Concomitant]
     Active Substance: PREDNISONE
     Indication: OFF LABEL USE
  8. DARATUMUMAB [Suspect]
     Active Substance: DARATUMUMAB
     Indication: PLASMA CELL MYELOMA
     Route: 065
  9. POMALYST [Suspect]
     Active Substance: POMALIDOMIDE
     Indication: PLASMA CELL MYELOMA
     Route: 048

REACTIONS (6)
  - Confusional state [Unknown]
  - Pyrexia [Unknown]
  - Lung infection [Unknown]
  - Pneumonia [Unknown]
  - Plasma cell myeloma [Unknown]
  - Hypoxia [Unknown]
